FAERS Safety Report 12380922 (Version 1)
Quarter: 2016Q2

REPORT INFORMATION
  Report Type: Spontaneous
  Country: DK (occurrence: DK)
  Receive Date: 20160518
  Receipt Date: 20160518
  Transmission Date: 20160815
  Serious: Yes (Hospitalization)
  Sender: FDA-Public Use
  Company Number: DK-PFIZER INC-2016259875

PATIENT
  Sex: Female

DRUGS (2)
  1. OXALIPLATIN. [Suspect]
     Active Substance: OXALIPLATIN
     Indication: RECTAL CANCER
     Dosage: STRENGTH: 5 MG/ML
     Route: 042
     Dates: start: 201402, end: 201406
  2. FLUOROURACIL ACCORD [Suspect]
     Active Substance: FLUOROURACIL
     Indication: RECTAL CANCER
     Dosage: STRENGTH: 50 MG/ML
     Route: 042
     Dates: start: 201402, end: 201406

REACTIONS (11)
  - Nasal mucosal disorder [Unknown]
  - Bone marrow failure [Unknown]
  - Fatigue [Unknown]
  - Cognitive disorder [Recovering/Resolving]
  - Language disorder [Unknown]
  - Amnesia [Unknown]
  - Memory impairment [Unknown]
  - Disturbance in attention [Recovered/Resolved]
  - Alopecia [Unknown]
  - Dyspnoea [Unknown]
  - Learning disability [Unknown]

NARRATIVE: CASE EVENT DATE: 2014
